FAERS Safety Report 14101905 (Version 2)
Quarter: 2017Q4

REPORT INFORMATION
  Report Type: Spontaneous
  Country: US (occurrence: US)
  Receive Date: 20171018
  Receipt Date: 20171108
  Transmission Date: 20180321
  Serious: Yes (Death, Hospitalization, Other)
  Sender: FDA-Public Use
  Company Number: US-ASTELLAS-2017US042058

PATIENT
  Age: 4 Decade
  Sex: Male

DRUGS (6)
  1. 2-CDA [Suspect]
     Active Substance: CLADRIBINE
     Indication: BLAST CRISIS IN MYELOGENOUS LEUKAEMIA
     Dosage: UNK UNK, UNKNOWN FREQ.
     Route: 065
  2. ARA-C [Suspect]
     Active Substance: CYTARABINE
     Indication: BLAST CRISIS IN MYELOGENOUS LEUKAEMIA
     Dosage: UNK UNK, UNKNOWN FREQ.
     Route: 065
  3. TACROLIMUS. [Suspect]
     Active Substance: TACROLIMUS
     Indication: CHRONIC GRAFT VERSUS HOST DISEASE
     Dosage: UNK UNK, UNKNOWN FREQ.
     Route: 065
  4. G-CSF [Suspect]
     Active Substance: GRANULOCYTE COLONY-STIMULATING FACTOR NOS
     Indication: BLAST CRISIS IN MYELOGENOUS LEUKAEMIA
     Dosage: UNK UNK, UNKNOWN FREQ.
     Route: 065
  5. TACROLIMUS. [Suspect]
     Active Substance: TACROLIMUS
     Dosage: UNK UNK, UNKNOWN FREQ.
     Route: 065
  6. SIROLIMUS. [Concomitant]
     Active Substance: SIROLIMUS
     Indication: STEM CELL TRANSPLANT
     Dosage: UNK, UNKNOWN FREQ.
     Route: 065

REACTIONS (8)
  - Death [Fatal]
  - Pancytopenia [Unknown]
  - Graft versus host disease in skin [Recovering/Resolving]
  - Off label use [Unknown]
  - Eccrine squamous syringometaplasia [Recovered/Resolved]
  - Ichthyosis [Recovering/Resolving]
  - Leukaemia recurrent [Unknown]
  - Blast crisis in myelogenous leukaemia [Unknown]
